FAERS Safety Report 4505766-8 (Version None)
Quarter: 2004Q4

REPORT INFORMATION
  Report Type: 
  Country: None (occurrence: None)
  Receive Date: 20041119
  Receipt Date: 20041110
  Transmission Date: 20050328
  Serious: Yes (Other)
  Sender: FDA-Public Use
  Company Number: JP-GLAXOSMITHKLINE-B0356810A

PATIENT
  Age: 50 Year
  Sex: Female

DRUGS (4)
  1. ZANTAC [Suspect]
     Indication: PREMEDICATION
     Dosage: 50MG PER DAY
     Route: 042
     Dates: start: 20041105, end: 20041105
  2. KYTRIL [Suspect]
     Indication: PREMEDICATION
     Dosage: 3MG PER DAY
     Route: 042
     Dates: start: 20041105, end: 20041105
  3. DECADRON [Suspect]
     Indication: PREMEDICATION
     Dosage: 8MG PER DAY
     Route: 042
     Dates: start: 20041105, end: 20041105
  4. LACTEC [Concomitant]
     Indication: INJECTION
     Dosage: 100ML PER DAY
     Route: 042
     Dates: start: 20041105, end: 20041105

REACTIONS (2)
  - ANAPHYLACTOID REACTION [None]
  - HYPOTENSION [None]
